FAERS Safety Report 6556165-9 (Version None)
Quarter: 2010Q1

REPORT INFORMATION
  Report Type: 
  Country: None (occurrence: None)
  Receive Date: 20100125
  Receipt Date: 20100113
  Transmission Date: 20100710
  Serious: Yes (Life-Threatening, Hospitalization)
  Sender: FDA-Public Use
  Company Number: 93801

PATIENT
  Age: 73 Year
  Sex: Female

DRUGS (1)
  1. METHOTREXATE INJ. USP 50MG/ 2ML - BEDFORD LABS, INC. [Suspect]
     Indication: RHEUMATOID ARTHRITIS
     Dosage: 7.5MG X ONCE WEEKLY X 15 YEARS

REACTIONS (1)
  - ACUTE MYELOID LEUKAEMIA [None]
